FAERS Safety Report 6505270-1 (Version None)
Quarter: 2009Q4

REPORT INFORMATION
  Report Type: 
  Country: None (occurrence: None)
  Receive Date: 20091218
  Receipt Date: 20091210
  Transmission Date: 20100525
  Serious: Yes (Hospitalization, Other)
  Sender: FDA-Public Use
  Company Number: JP-JNJFOC-20091203805

PATIENT
  Age: 54 Year
  Sex: Male

DRUGS (2)
  1. RISPERDAL [Suspect]
     Indication: DEPRESSIVE SYMPTOM
     Route: 048
  2. ROSUVASTATIN CALCIUM [Concomitant]
     Indication: DYSLIPIDAEMIA
     Route: 048

REACTIONS (5)
  - ASTHENIA [None]
  - COUGH [None]
  - MUSCULAR WEAKNESS [None]
  - PNEUMONIA [None]
  - RHABDOMYOLYSIS [None]
